FAERS Safety Report 14006771 (Version 1)
Quarter: 2017Q3

REPORT INFORMATION
  Report Type: Spontaneous
  Country: US (occurrence: US)
  Receive Date: 20170925
  Receipt Date: 20170925
  Transmission Date: 20171128
  Serious: No
  Sender: FDA-Public Use
  Company Number: US-B.I. PHARMACEUTICALS,INC./RIDGEFIELD-2017-BI-051178

PATIENT
  Age: 10 Year
  Sex: Male
  Weight: 30 kg

DRUGS (5)
  1. ROPIVICAINE [Concomitant]
     Active Substance: ROPIVACAINE
     Indication: PRODUCT USED FOR UNKNOWN INDICATION
     Dosage: DOSE : 3ML BOLUS OF 0.2% ROPIVICAINE
     Route: 050
  2. CATAPRESAN [Suspect]
     Active Substance: CLONIDINE
     Indication: PRODUCT USED FOR UNKNOWN INDICATION
     Dosage: STRENGTH: 2 MCG/ML
     Route: 065
  3. SEVOFLURANE. [Concomitant]
     Active Substance: SEVOFLURANE
     Indication: PRODUCT USED FOR UNKNOWN INDICATION
     Dosage: INHALATION INDUCTION, IV PLACEMENT
     Route: 055
  4. HYDROMORPHONE [Concomitant]
     Active Substance: HYDROMORPHONE
     Indication: PRODUCT USED FOR UNKNOWN INDICATION
     Dosage: 5MCG/ML
     Route: 065
  5. LIDOCAINE W/ EPINEPHRINE [Concomitant]
     Indication: PRODUCT USED FOR UNKNOWN INDICATION
     Dosage: NEGATIVE 3 ML TEST DOSE OF 1.5%LIDOCAINE WITH 1:200000 EPINEPHRINE
     Route: 065

REACTIONS (2)
  - Paraesthesia [Recovered/Resolved]
  - Harlequin syndrome [Unknown]
